FAERS Safety Report 8215813-8 (Version None)
Quarter: 2012Q1

REPORT INFORMATION
  Report Type: 
  Country: None (occurrence: None)
  Receive Date: 20120316
  Receipt Date: 20120306
  Transmission Date: 20120608
  Serious: Yes (Other)
  Sender: FDA-Public Use
  Company Number: BR-ROCHE-702682

PATIENT
  Sex: Female
  Weight: 85 kg

DRUGS (15)
  1. MABTHERA [Suspect]
     Dosage: DOSE: 1000 MG/ML
     Route: 042
     Dates: start: 20091124, end: 20091208
  2. MABTHERA [Suspect]
     Route: 042
     Dates: start: 20091101, end: 20101001
  3. ADALIMUMAB [Suspect]
     Indication: PRODUCT USED FOR UNKNOWN INDICATION
     Route: 065
  4. ASPIRIN W CAFFEINE [Concomitant]
  5. ACETAMINOPHEN [Concomitant]
     Indication: ANALGESIC THERAPY
     Dosage: FREQUENCY: WHEN NECESSARY
  6. MABTHERA [Suspect]
     Indication: RHEUMATOID ARTHRITIS
     Dosage: DOSE: 1000 MG/ML; FORM: INFUSION
     Route: 042
     Dates: start: 20081015, end: 20081030
  7. MABTHERA [Suspect]
     Dosage: DOSE:1000 MG/ML
     Route: 042
     Dates: start: 20101001, end: 20101001
  8. ALLEGRA-D 12 HOUR [Concomitant]
     Dosage: DRUG REPORTED AS ALEGRA D
     Dates: start: 20090101, end: 20090101
  9. METHOTREXATE [Suspect]
     Indication: RHEUMATOID ARTHRITIS
     Route: 065
  10. DORFLEX [Concomitant]
     Dosage: DORFLEX P
  11. ACETAMINOPHEN [Concomitant]
  12. IBUPROFEN (ADVIL) [Concomitant]
  13. HYDROXYCHLOROQUINE SULFATE [Suspect]
     Indication: PRODUCT USED FOR UNKNOWN INDICATION
     Dosage: REPORTED AS REUQUINOL
     Route: 065
  14. ENGOV [Concomitant]
  15. ALLEGRA-D 12 HOUR [Concomitant]
     Dates: start: 20101021, end: 20101025

REACTIONS (30)
  - TRACHEAL OEDEMA [None]
  - DYSPNOEA [None]
  - HYPERSENSITIVITY [None]
  - DRUG HYPERSENSITIVITY [None]
  - GAIT DISTURBANCE [None]
  - DRY MOUTH [None]
  - PHARYNGEAL OEDEMA [None]
  - ANAPHYLACTIC SHOCK [None]
  - ERYTHEMA [None]
  - DYSPHAGIA [None]
  - MALAISE [None]
  - SKIN WARM [None]
  - BRONCHITIS [None]
  - MUSCULAR WEAKNESS [None]
  - SENSATION OF FOREIGN BODY [None]
  - FEELING OF BODY TEMPERATURE CHANGE [None]
  - MUSCULOSKELETAL STIFFNESS [None]
  - GASTROINTESTINAL INFECTION [None]
  - PAIN [None]
  - BLOOD CHOLESTEROL INCREASED [None]
  - BRONCHITIS CHRONIC [None]
  - CHOLELITHIASIS [None]
  - TOOTH FRACTURE [None]
  - DRY THROAT [None]
  - HEADACHE [None]
  - SWELLING FACE [None]
  - TACHYCARDIA [None]
  - CHEST DISCOMFORT [None]
  - NONSPECIFIC REACTION [None]
  - OEDEMA PERIPHERAL [None]
